FAERS Safety Report 11581393 (Version 1)
Quarter: 2015Q4

REPORT INFORMATION
  Report Type: Spontaneous
  Country: US (occurrence: US)
  Receive Date: 20151001
  Receipt Date: 20151001
  Transmission Date: 20160304
  Serious: No
  Sender: FDA-Public Use
  Company Number: US-ROCHE-692516

PATIENT
  Age: 36 Year
  Sex: Male
  Weight: 88.5 kg

DRUGS (4)
  1. IBUPROFEN. [Concomitant]
     Active Substance: IBUPROFEN
     Route: 065
  2. PEGASYS [Suspect]
     Active Substance: PEGINTERFERON ALFA-2A
     Indication: HEPATITIS C
     Dosage: FORM: PRE-FILLED SYRINGES. THE PATIENT WAS IN WEEK 3 OF TREATMENT.
     Route: 058
  3. AMITRIPTYLINE [Suspect]
     Active Substance: AMITRIPTYLINE
     Indication: PRODUCT USED FOR UNKNOWN INDICATION
     Route: 065
  4. RIBAVIRIN. [Suspect]
     Active Substance: RIBAVIRIN
     Indication: HEPATITIS C
     Dosage: IN DIVIDED DOSES. THE PATIENT WAS IN WEEK 3 OF TREATMENT.
     Route: 048

REACTIONS (6)
  - Pain [Unknown]
  - Anger [Unknown]
  - Weight decreased [Unknown]
  - Chromaturia [Unknown]
  - Somnolence [Unknown]
  - Diarrhoea [Unknown]

NARRATIVE: CASE EVENT DATE: 20100317
